FAERS Safety Report 8816268 (Version 1)
Quarter: 2012Q4

REPORT INFORMATION
  Report Type: Spontaneous
  Country: US (occurrence: None)
  Receive Date: 20120927
  Receipt Date: 20120927
  Transmission Date: 20130627
  Serious: No
  Sender: FDA-Public Use
  Company Number: None

PATIENT
  Age: 23 Year
  Sex: Female
  Weight: 77.11 kg

DRUGS (1)
  1. VANCOMYCIN [Suspect]
     Indication: LABOR INDUCTION
     Dosage: 1 gram once IV Drip
     Route: 041
     Dates: start: 20120905, end: 20120905

REACTIONS (7)
  - Pruritus [None]
  - Pruritus [None]
  - Eye swelling [None]
  - Lip swelling [None]
  - Maternal exposure during delivery [None]
  - Oedema mouth [None]
  - Feeling abnormal [None]
